FAERS Safety Report 7462648-X (Version None)
Quarter: 2011Q2

REPORT INFORMATION
  Report Type: 
  Country: None (occurrence: None)
  Receive Date: 20110506
  Receipt Date: 20110504
  Transmission Date: 20111010
  Serious: Yes (Hospitalization, Other)
  Sender: FDA-Public Use
  Company Number: PHHY2010BR43146

PATIENT
  Sex: Female

DRUGS (6)
  1. SYNTHROID [Concomitant]
     Indication: HYPOTHYROIDISM
     Dosage: 1 DF, UNK
     Route: 048
  2. CARVEDILOL [Concomitant]
     Indication: CARDIAC DISORDER
     Dosage: 1 TABLET (25 MG), DAILY
     Route: 048
  3. AMARYL [Concomitant]
     Indication: TYPE 2 DIABETES MELLITUS
     Dosage: 1 MG, DAILY
     Route: 048
  4. AMLODIPINE BESYLATE/VALSARTAN [Suspect]
     Indication: HYPERTENSION
     Dosage: 1 TABLET (160/5) MG, DAILY
     Route: 048
     Dates: start: 20090201
  5. MAREVAN [Concomitant]
     Indication: ANTICOAGULANT THERAPY
     Dosage: 1 TABLET (5 MG), DAILY
     Route: 048
  6. VIVACOR [Concomitant]
     Indication: CARDIAC DISORDER
     Dosage: 1 DF, UNK
     Route: 048

REACTIONS (3)
  - PLEURAL EFFUSION [None]
  - ACUTE MYOCARDIAL INFARCTION [None]
  - ABDOMINAL PAIN UPPER [None]
